FAERS Safety Report 20354893 (Version 2)
Quarter: 2022Q1

REPORT INFORMATION
  Report Type: Spontaneous
  Country: US (occurrence: US)
  Receive Date: 20220120
  Receipt Date: 20220318
  Transmission Date: 20220423
  Serious: Yes (Hospitalization)
  Sender: FDA-Public Use
  Company Number: US-AMNEAL PHARMACEUTICALS-2022-AMRX-00059

PATIENT
  Age: 1 Year
  Sex: Female
  Weight: 9.388 kg

DRUGS (1)
  1. VIGABATRIN [Suspect]
     Active Substance: VIGABATRIN
     Indication: Infantile spasms
     Dosage: 10 MILLILITER, 2 /DAY
     Route: 048

REACTIONS (3)
  - Gastrointestinal disorder [Unknown]
  - Adverse event [Unknown]
  - Pneumonia [Unknown]

NARRATIVE: CASE EVENT DATE: 20211214
